FAERS Safety Report 15067689 (Version 2)
Quarter: 2018Q3

REPORT INFORMATION
  Report Type: Spontaneous
  Country: US (occurrence: US)
  Receive Date: 20180626
  Receipt Date: 20180827
  Transmission Date: 20181010
  Serious: Yes (Hospitalization, Other)
  Sender: FDA-Public Use
  Company Number: US-BAYER-2018-120302

PATIENT
  Age: 31 Year
  Sex: Female

DRUGS (2)
  1. MIRENA [Suspect]
     Active Substance: LEVONORGESTREL
     Indication: CONTRACEPTION
     Dosage: 20 MCG/24HR, CONT
     Route: 015
     Dates: start: 20180515, end: 20180623
  2. LEVOTHYROXIN [Concomitant]
     Active Substance: LEVOTHYROXINE
     Dosage: 112 MCG/24HR, UNK
     Route: 048

REACTIONS (13)
  - Adnexa uteri cyst [None]
  - Nausea [Recovering/Resolving]
  - Pyrexia [Recovered/Resolved]
  - Sepsis [None]
  - Genital haemorrhage [Not Recovered/Not Resolved]
  - Oophoritis [None]
  - Abdominal pain [None]
  - Blood pressure systolic decreased [None]
  - Pelvic fluid collection [None]
  - Tubo-ovarian abscess [Not Recovered/Not Resolved]
  - Abdominal tenderness [None]
  - Fatigue [None]
  - Salpingitis [None]

NARRATIVE: CASE EVENT DATE: 201806
